FAERS Safety Report 18810402 (Version 1)
Quarter: 2021Q1

REPORT INFORMATION
  Report Type: Spontaneous
  Country: IT (occurrence: IT)
  Receive Date: 20210129
  Receipt Date: 20210129
  Transmission Date: 20210419
  Serious: Yes (Hospitalization)
  Sender: FDA-Public Use
  Company Number: IT-PFIZER INC-2021060140

PATIENT
  Age: 56 Year
  Sex: Female

DRUGS (3)
  1. TIGECYCLINE. [Suspect]
     Active Substance: TIGECYCLINE
     Indication: ACINETOBACTER INFECTION
     Route: 065
  2. CEFIDEROCOL. [Concomitant]
     Active Substance: CEFIDEROCOL
     Indication: ACINETOBACTER INFECTION
     Dosage: 2 G, 3X/DAY FOR 21 DAYS
     Route: 065
  3. COLISTIN [Suspect]
     Active Substance: COLISTIN
     Indication: ACINETOBACTER INFECTION
     Route: 065

REACTIONS (2)
  - Drug ineffective [Unknown]
  - Coagulopathy [Unknown]
